FAERS Safety Report 11656454 (Version 1)
Quarter: 2015Q4

REPORT INFORMATION
  Report Type: Spontaneous
  Country: US (occurrence: None)
  Receive Date: 20151023
  Receipt Date: 20151023
  Transmission Date: 20160304
  Serious: Yes (Other)
  Sender: FDA-Public Use
  Company Number: ADR-2015-01652

PATIENT
  Age: 41 Year
  Sex: Female

DRUGS (2)
  1. BUPIVACAINE (INTRATHECAL) 5.5MG/ML [Suspect]
     Active Substance: BUPIVACAINE
     Indication: PAIN
     Dosage: 2.75 MG/DAY
  2. COMPOUNDED BACLOFEN INTRATHECAL 100MCG/ML [Suspect]
     Active Substance: BACLOFEN
     Indication: PAIN
     Dosage: 50 MCG/DAY

REACTIONS (2)
  - Dysgeusia [None]
  - Paraesthesia [None]
